FAERS Safety Report 11146256 (Version 4)
Quarter: 2015Q4

REPORT INFORMATION
  Report Type: Report from Study
  Country: BE (occurrence: BE)
  Receive Date: 20150528
  Receipt Date: 20151102
  Transmission Date: 20160304
  Serious: Yes (Hospitalization)
  Sender: FDA-Public Use
  Company Number: BE-ABBVIE-15P-013-1397637-00

PATIENT
  Sex: Male

DRUGS (3)
  1. DUODOPA [Suspect]
     Active Substance: CARBIDOPA\LEVODOPA
     Dosage: AM10.5ML; CD4.2ML/HRS DURING 16HRS; ED 2ML
     Route: 050
     Dates: start: 20141208
  2. DUODOPA [Suspect]
     Active Substance: CARBIDOPA\LEVODOPA
     Dosage: DOSES CONTINUOUSLY MONITORED AND ADAPTED.
     Route: 050
     Dates: start: 20100326, end: 20141208
  3. DUODOPA [Suspect]
     Active Substance: CARBIDOPA\LEVODOPA
     Indication: PARKINSON^S DISEASE
     Dosage: AM 7ML; CD 3.8ML/HR DURING 16HRS; ED4ML
     Route: 050
     Dates: start: 20100323, end: 20100326

REACTIONS (3)
  - Device issue [Unknown]
  - Fall [Unknown]
  - Clavicle fracture [Unknown]
